FAERS Safety Report 5901150-0 (Version None)
Quarter: 2008Q3

REPORT INFORMATION
  Report Type: 
  Country: None (occurrence: None)
  Receive Date: 20080929
  Receipt Date: 20080922
  Transmission Date: 20090109
  Serious: Yes (Other)
  Sender: FDA-Public Use
  Company Number: US-JNJFOC-20080705447

PATIENT
  Sex: Female
  Weight: 58.97 kg

DRUGS (2)
  1. LEVAQUIN [Suspect]
     Indication: SKIN INFECTION
     Route: 048
  2. LEVAQUIN [Suspect]
     Indication: CYST
     Route: 048

REACTIONS (4)
  - MUSCLE ATROPHY [None]
  - MUSCLE RUPTURE [None]
  - TENDON RUPTURE [None]
  - TENDONITIS [None]
